FAERS Safety Report 6283583-9 (Version None)
Quarter: 2009Q3

REPORT INFORMATION
  Report Type: 
  Country: None (occurrence: None)
  Receive Date: 20090722
  Receipt Date: 20090722
  Transmission Date: 20100115
  Serious: No
  Sender: FDA-Public Use
  Company Number: None

PATIENT
  Age: 4 Year
  Sex: Male
  Weight: 18.5975 kg

DRUGS (1)
  1. SINGULAIR [Suspect]
     Indication: COUGH
     Dosage: 4MG QHS PO
     Route: 048
     Dates: start: 20090601, end: 20090715

REACTIONS (5)
  - ABNORMAL BEHAVIOUR [None]
  - AGGRESSION [None]
  - ANGER [None]
  - CRYING [None]
  - SCREAMING [None]
